FAERS Safety Report 5957091-6 (Version None)
Quarter: 2008Q4

REPORT INFORMATION
  Report Type: 
  Country: None (occurrence: None)
  Receive Date: 20081118
  Receipt Date: 20081106
  Transmission Date: 20090506
  Serious: Yes (Other)
  Sender: FDA-Public Use
  Company Number: DE-PFIZER INC-2008073849

PATIENT
  Sex: Male
  Weight: 80 kg

DRUGS (1)
  1. ZELDOX (CAPSULES) [Suspect]
     Indication: SCHIZOAFFECTIVE DISORDER
     Route: 048
     Dates: start: 20080319

REACTIONS (4)
  - APHASIA [None]
  - BRADYPHRENIA [None]
  - DYSARTHRIA [None]
  - FATIGUE [None]
